FAERS Safety Report 25819910 (Version 2)
Quarter: 2025Q3

REPORT INFORMATION
  Report Type: Report from Study
  Country: CO (occurrence: CO)
  Receive Date: 20250918
  Receipt Date: 20250929
  Transmission Date: 20251020
  Serious: Yes (Hospitalization)
  Sender: JOHNSON AND JOHNSON
  Company Number: CO-BAYER-2025A122697

PATIENT
  Age: 48 Year
  Sex: Female

DRUGS (1)
  1. VENTAVIS [Suspect]
     Active Substance: ILOPROST
     Indication: Pulmonary arterial hypertension
     Route: 055
     Dates: start: 20241101

REACTIONS (7)
  - Pneumonia viral [Not Recovered/Not Resolved]
  - Thermal burn [Not Recovered/Not Resolved]
  - Incorrect dose administered by device [Unknown]
  - Inappropriate schedule of product administration [Unknown]
  - Drug administered in wrong device [Unknown]
  - Product administration error [Unknown]
  - Product availability issue [Unknown]

NARRATIVE: CASE EVENT DATE: 20250901
